FAERS Safety Report 26142393 (Version 1)
Quarter: 2025Q4

REPORT INFORMATION
  Report Type: Report from Study
  Country: CA (occurrence: CA)
  Receive Date: 20251210
  Receipt Date: 20251210
  Transmission Date: 20260117
  Serious: No
  Sender: BIOGEN
  Company Number: CA-BIOGEN-2093210

PATIENT
  Age: 43 Year
  Sex: Female

DRUGS (1)
  1. TYSABRI [Suspect]
     Active Substance: NATALIZUMAB
     Indication: Multiple sclerosis
     Dates: start: 20221114

REACTIONS (5)
  - Cheilitis [Recovering/Resolving]
  - Wound haemorrhage [Recovered/Resolved]
  - Lip swelling [Recovering/Resolving]
  - Lip erythema [Recovering/Resolving]
  - Scab [Recovered/Resolved]

NARRATIVE: CASE EVENT DATE: 20251101
